FAERS Safety Report 9696430 (Version 1)
Quarter: 2013Q4

REPORT INFORMATION
  Report Type: Spontaneous
  Country: CG (occurrence: CG)
  Receive Date: 20131119
  Receipt Date: 20131119
  Transmission Date: 20140711
  Serious: Yes (Hospitalization, Disabling)
  Sender: FDA-Public Use
  Company Number: CG-MYLANLABS-2013S1025292

PATIENT
  Age: 29 Year
  Sex: Female

DRUGS (2)
  1. BUPIVACAINE [Suspect]
     Indication: CAESAREAN SECTION
     Dosage: ISOBARIC
     Route: 037
  2. FENTANYL [Suspect]
     Indication: CAESAREAN SECTION
     Route: 037

REACTIONS (3)
  - Hypotension [Recovered/Resolved]
  - Ischaemic cerebral infarction [Not Recovered/Not Resolved]
  - Maternal exposure during delivery [Not Recovered/Not Resolved]
